FAERS Safety Report 21361841 (Version 3)
Quarter: 2023Q1

REPORT INFORMATION
  Report Type: Report from Study
  Country: US (occurrence: US)
  Receive Date: 20220922
  Receipt Date: 20230314
  Transmission Date: 20230418
  Serious: No
  Sender: FDA-Public Use
  Company Number: US-NOVARTISTESTPH-NVSC2022US213843

PATIENT
  Age: 2 Year
  Sex: Female

DRUGS (3)
  1. ILARIS [Suspect]
     Active Substance: CANAKINUMAB
     Indication: Still^s disease
     Dosage: 55 MG, FOR EVERY 4 WEEKS
     Route: 058
     Dates: start: 20220810
  2. ILARIS [Suspect]
     Active Substance: CANAKINUMAB
     Dosage: 55 MG
     Route: 058
     Dates: start: 20220909
  3. ILARIS [Suspect]
     Active Substance: CANAKINUMAB
     Dosage: 60 MG (EVERY 4 WEEKS)
     Route: 058
     Dates: start: 20220810

REACTIONS (1)
  - Incorrect dose administered [Unknown]

NARRATIVE: CASE EVENT DATE: 20220909
